FAERS Safety Report 4995241-9 (Version None)
Quarter: 2006Q2

REPORT INFORMATION
  Report Type: 
  Country: None (occurrence: None)
  Receive Date: 20060508
  Receipt Date: 20051107
  Transmission Date: 20061013
  Serious: Yes (Hospitalization, Disabling)
  Sender: FDA-Public Use
  Company Number: US-MERCK-0511USA01628

PATIENT
  Age: 36 Year
  Sex: Female
  Weight: 87 kg

DRUGS (10)
  1. VIOXX [Suspect]
     Indication: ARTHRALGIA
     Route: 048
     Dates: start: 20020424, end: 20041201
  2. VIOXX [Suspect]
     Route: 048
     Dates: start: 20020424, end: 20041201
  3. VIOXX [Suspect]
     Indication: JOINT SWELLING
     Route: 048
     Dates: start: 20020424, end: 20041201
  4. VIOXX [Suspect]
     Route: 048
     Dates: start: 20020424, end: 20041201
  5. NEXIUM [Concomitant]
     Route: 065
  6. LIPITOR [Concomitant]
     Route: 065
  7. AVANDIA [Concomitant]
     Route: 065
  8. LORTAB [Concomitant]
     Route: 065
  9. GLUCOVANCE [Concomitant]
     Route: 065
  10. HUMULIN 70/30 [Concomitant]
     Route: 065

REACTIONS (15)
  - CEREBRAL INFARCTION [None]
  - CEREBROVASCULAR ACCIDENT [None]
  - DEPRESSION [None]
  - DIABETES MELLITUS INADEQUATE CONTROL [None]
  - HEADACHE [None]
  - HEMIPARESIS [None]
  - HYPOGLYCAEMIA [None]
  - INJURY [None]
  - MIGRAINE WITH AURA [None]
  - NAUSEA [None]
  - PHOTOPHOBIA [None]
  - PULMONARY FIBROSIS [None]
  - RALES [None]
  - TINNITUS [None]
  - TREATMENT NONCOMPLIANCE [None]
